FAERS Safety Report 4411179-X (Version None)
Quarter: 2004Q2

REPORT INFORMATION
  Report Type: 
  Country: None (occurrence: None)
  Receive Date: 20040630
  Receipt Date: 20040525
  Transmission Date: 20050107
  Serious: No
  Sender: FDA-Public Use
  Company Number: 04P-163-0260881-00

PATIENT
  Age: 63 Year
  Sex: Female
  Weight: 52.6173 kg

DRUGS (9)
  1. HUMIRA [Suspect]
     Indication: RHEUMATOID ARTHRITIS
     Dosage: 40 MG, 1 IN 2 WK, SUBCUTANEOUS
     Route: 058
     Dates: start: 20040326, end: 20040507
  2. HUMIRA [Suspect]
     Indication: RHEUMATOID ARTHRITIS
     Dosage: 40 MG, 1 IN 2 WK, SUBCUTANEOUS
     Route: 058
     Dates: start: 20040501
  3. POTASSIUM CHLORIDE [Concomitant]
  4. HYDRALAZINE [Concomitant]
  5. FUROSEMIDE [Concomitant]
  6. PENTAMIDINE DIMESILATE [Concomitant]
  7. METOPROLOL [Concomitant]
  8. ATORVASTATIN CALCIUM [Concomitant]
  9. CLONIDINE HCL [Concomitant]

REACTIONS (6)
  - BURNING SENSATION [None]
  - EYE IRRITATION [None]
  - INJECTION SITE ERYTHEMA [None]
  - INJECTION SITE STINGING [None]
  - PRURITUS [None]
  - SKIN LESION [None]
